FAERS Safety Report 4597201-9 (Version None)
Quarter: 2005Q1

REPORT INFORMATION
  Report Type: 
  Country: None (occurrence: None)
  Receive Date: 20050301
  Receipt Date: 20050214
  Transmission Date: 20050727
  Serious: Yes (Hospitalization)
  Sender: FDA-Public Use
  Company Number: ZONI002100

PATIENT
  Age: 14 Year
  Sex: Female

DRUGS (8)
  1. EXCEGRAN (ZONISAMIDE) [Suspect]
     Indication: EPILEPSY
     Dosage: 100 MG, 1 IN 1 D, ORAL
     Route: 048
     Dates: start: 20041119, end: 20050105
  2. CLARITHROMYCIN [Concomitant]
  3. PERIACTIN [Concomitant]
  4. MEDICON (DEXTROMETHORPHAN HYDROBROMIDE) [Concomitant]
  5. MUCOSOLVAN (AMBROXOL HYDROCHLORIDE) [Concomitant]
  6. TAHTION (GLUTATHIONE) [Concomitant]
  7. CINAL (CINAL) [Concomitant]
  8. VALPROATE SODIUM [Concomitant]

REACTIONS (7)
  - ALANINE AMINOTRANSFERASE INCREASED [None]
  - ASPARTATE AMINOTRANSFERASE INCREASED [None]
  - DISEASE RECURRENCE [None]
  - DRUG HYPERSENSITIVITY [None]
  - HUMAN HERPESVIRUS 6 INFECTION [None]
  - INFECTIOUS MONONUCLEOSIS [None]
  - PYREXIA [None]
